FAERS Safety Report 10536247 (Version 2)
Quarter: 2014Q4

REPORT INFORMATION
  Report Type: Spontaneous
  Country: US (occurrence: US)
  Receive Date: 20141022
  Receipt Date: 20141022
  Transmission Date: 20150529
  Serious: Yes (Hospitalization)
  Sender: FDA-Public Use
  Company Number: US-RECKITT BENCKISER PHARMACEUTICAL, INC-RB-64663-2014

PATIENT

DRUGS (5)
  1. SUBOXONE [Suspect]
     Active Substance: BUPRENORPHINE HYDROCHLORIDE\NALOXONE HYDROCHLORIDE
     Dosage: SUBOXONE FILM; TAPERING OFF OF SUBOXONE; DOSING DETAILS UNKNOWN
     Route: 060
     Dates: start: 201402, end: 201402
  2. SUBOXONE [Suspect]
     Active Substance: BUPRENORPHINE HYDROCHLORIDE\NALOXONE HYDROCHLORIDE
     Indication: DRUG DEPENDENCE
     Dosage: SUBOXONE FILM; CUTTING
     Route: 060
     Dates: start: 201204, end: 201402
  3. CLONAZEPAM. [Concomitant]
     Active Substance: CLONAZEPAM
     Indication: ANXIETY
     Route: 048
  4. FLUOXETINE [Concomitant]
     Active Substance: FLUOXETINE\FLUOXETINE HYDROCHLORIDE
     Indication: DEPRESSION
     Route: 048
  5. SUBOXONE [Suspect]
     Active Substance: BUPRENORPHINE HYDROCHLORIDE\NALOXONE HYDROCHLORIDE
     Dosage: SUBOXONE FILM; CUT A LEFT OVER FILM IN HALF
     Route: 060
     Dates: start: 20140310, end: 20140310

REACTIONS (13)
  - Fatigue [Not Recovered/Not Resolved]
  - Influenza like illness [Unknown]
  - Anxiety [Not Recovered/Not Resolved]
  - Diarrhoea [Unknown]
  - Drug withdrawal syndrome [Not Recovered/Not Resolved]
  - Rhinorrhoea [Recovering/Resolving]
  - Weight increased [None]
  - Substance abuse [Recovered/Resolved]
  - Decreased appetite [Not Recovered/Not Resolved]
  - Drug detoxification [Recovered/Resolved]
  - Drug dependence [Unknown]
  - Weight decreased [Not Recovered/Not Resolved]
  - Lacrimation increased [Recovering/Resolving]

NARRATIVE: CASE EVENT DATE: 201402
